FAERS Safety Report 10555451 (Version 1)
Quarter: 2014Q4

REPORT INFORMATION
  Report Type: Report from Study
  Country: US (occurrence: US)
  Receive Date: 20141030
  Receipt Date: 20141030
  Transmission Date: 20150529
  Serious: Yes (Hospitalization)
  Sender: FDA-Public Use
  Company Number: US-EXELIXIS-CABO-14004894

PATIENT
  Sex: Male

DRUGS (3)
  1. CABOZANTINIB [Suspect]
     Active Substance: CABOZANTINIB
     Indication: RENAL CANCER
     Dosage: 40 MG, QD
     Route: 048
     Dates: start: 20141017
  2. FENTANYL. [Concomitant]
     Active Substance: FENTANYL
  3. HEPARIN [Concomitant]
     Active Substance: HEPARIN SODIUM

REACTIONS (7)
  - Pain [Unknown]
  - Pain in jaw [Unknown]
  - Dysphonia [Unknown]
  - Fatigue [Unknown]
  - Asthenia [Unknown]
  - Stomatitis [Unknown]
  - Off label use [Unknown]
